FAERS Safety Report 13202077 (Version 2)
Quarter: 2017Q2

REPORT INFORMATION
  Report Type: Report from Study
  Country: IT (occurrence: IT)
  Receive Date: 20170209
  Receipt Date: 20170524
  Transmission Date: 20170830
  Serious: Yes (Hospitalization)
  Sender: FDA-Public Use
  Company Number: IT-AMGEN-ITASP2017017498

PATIENT
  Age: 64 Year
  Sex: Male

DRUGS (7)
  1. LAMIVUDINE. [Concomitant]
     Active Substance: LAMIVUDINE
  2. TAMSULOSIN [Concomitant]
     Active Substance: TAMSULOSIN
  3. MINITRAN [Concomitant]
     Active Substance: NITROGLYCERIN
  4. SELEPARINA [Concomitant]
     Active Substance: NADROPARIN CALCIUM
  5. BLINATUMOMAB [Suspect]
     Active Substance: BLINATUMOMAB
     Indication: ACUTE LYMPHOCYTIC LEUKAEMIA
     Dosage: UNK UNK, QD
     Route: 042
     Dates: start: 20161128
  6. EUTIROX [Concomitant]
     Active Substance: LEVOTHYROXINE SODIUM
  7. ENAPREN [Concomitant]
     Active Substance: ENALAPRIL MALEATE

REACTIONS (3)
  - Confusional state [Recovered/Resolved]
  - Asthenia [Recovered/Resolved]
  - Dysarthria [Recovered/Resolved]

NARRATIVE: CASE EVENT DATE: 20170121
